FAERS Safety Report 25275033 (Version 1)
Quarter: 2025Q2

REPORT INFORMATION
  Report Type: Spontaneous
  Country: US (occurrence: None)
  Receive Date: 20250506
  Receipt Date: 20250506
  Transmission Date: 20250717
  Serious: Yes (Death)
  Sender: INCYTE
  Company Number: US-002147023-NVSC2025US067378

PATIENT
  Age: 15 Year

DRUGS (11)
  1. JAKAFI [Suspect]
     Active Substance: RUXOLITINIB
     Indication: Respiratory distress
     Dosage: 7.5 MG, BID
     Route: 065
  2. JAKAFI [Suspect]
     Active Substance: RUXOLITINIB
     Indication: Portal hypertension
     Dosage: 10 MG, BID
     Route: 065
  3. JAKAFI [Suspect]
     Active Substance: RUXOLITINIB
     Indication: Gastrointestinal disorder
  4. JAKAFI [Suspect]
     Active Substance: RUXOLITINIB
     Indication: Malnutrition
  5. JAKAFI [Suspect]
     Active Substance: RUXOLITINIB
     Indication: Immune system disorder
  6. TOCILIZUMAB [Suspect]
     Active Substance: TOCILIZUMAB
     Indication: Respiratory disorder
     Route: 065
  7. TOCILIZUMAB [Suspect]
     Active Substance: TOCILIZUMAB
     Indication: Portal hypertension
  8. TOCILIZUMAB [Suspect]
     Active Substance: TOCILIZUMAB
     Indication: Gastrointestinal disorder
  9. TOCILIZUMAB [Suspect]
     Active Substance: TOCILIZUMAB
     Indication: Malnutrition
  10. PREDNISOLONE [Concomitant]
     Active Substance: PREDNISOLONE
     Indication: Respiratory disorder
     Route: 065
  11. PREDNISOLONE [Concomitant]
     Active Substance: PREDNISOLONE
     Indication: Gastrointestinal disorder

REACTIONS (6)
  - Drug ineffective for unapproved indication [Unknown]
  - Pseudomonal sepsis [Fatal]
  - Pulmonary haemorrhage [Fatal]
  - Bronchopulmonary aspergillosis [Fatal]
  - Torulopsis infection [Fatal]
  - Respiratory failure [Fatal]
